FAERS Safety Report 4967267-2 (Version None)
Quarter: 2006Q2

REPORT INFORMATION
  Report Type: 
  Country: None (occurrence: None)
  Receive Date: 20060410
  Receipt Date: 20060327
  Transmission Date: 20061013
  Serious: Yes (Hospitalization)
  Sender: FDA-Public Use
  Company Number: 2006AC00676

PATIENT
  Age: 14 Year
  Sex: Male
  Weight: 73 kg

DRUGS (1)
  1. QUETIAPINE [Suspect]
     Route: 048

REACTIONS (5)
  - AGITATION [None]
  - INTENTIONAL OVERDOSE [None]
  - LETHARGY [None]
  - SOMNOLENCE [None]
  - SUICIDE ATTEMPT [None]
